FAERS Safety Report 5422932-8 (Version None)
Quarter: 2007Q3

REPORT INFORMATION
  Report Type: 
  Country: None (occurrence: None)
  Receive Date: 20070822
  Receipt Date: 20070810
  Transmission Date: 20080115
  Serious: Yes (Death)
  Sender: FDA-Public Use
  Company Number: US-PFIZER INC-2007064954

PATIENT
  Age: 54 Year
  Sex: Male
  Weight: 111 kg

DRUGS (2)
  1. SUTENT [Suspect]
     Indication: ADENOCARCINOMA PANCREAS
     Route: 048
     Dates: start: 20070719, end: 20070722
  2. LOVENOX [Concomitant]

REACTIONS (1)
  - DEATH [None]
